FAERS Safety Report 9723171 (Version 1)
Quarter: 2013Q4

REPORT INFORMATION
  Report Type: Spontaneous
  Country: US (occurrence: None)
  Receive Date: 20131127
  Receipt Date: 20131127
  Transmission Date: 20140711
  Serious: No
  Sender: FDA-Public Use
  Company Number: None

PATIENT
  Age: 82 Year
  Sex: Female
  Weight: 72.58 kg

DRUGS (22)
  1. ESOMEPRAZOLE [Suspect]
     Indication: GASTROOESOPHAGEAL REFLUX DISEASE
     Dosage: 40 MG, 1 TABLET, 1 DAILY, MOUTH
     Route: 048
     Dates: end: 20131105
  2. TRAZODONE [Concomitant]
  3. MACROBID [Concomitant]
  4. NORVASC [Concomitant]
  5. PRAVASTATIN [Concomitant]
  6. SUPEDRINE [Concomitant]
  7. TETRAHYDROZOLINE [Concomitant]
  8. SULFONAMIDE [Concomitant]
  9. CIPROFLOXACIN [Concomitant]
  10. FENOFIPRATE [Concomitant]
  11. ZETIA [Concomitant]
  12. ATENOLOL [Concomitant]
  13. ESOMEPRAZOLE [Concomitant]
  14. LISINOPRIL [Concomitant]
  15. LATANOPROST [Concomitant]
  16. CHOLESTOFF [Concomitant]
  17. FLAX SEED [Concomitant]
  18. ASPIRIN [Concomitant]
  19. FIBER POWDER [Concomitant]
  20. CENTRUM- CALCIUM +D [Concomitant]
  21. CO-Q10 [Concomitant]
  22. FISH OIL [Concomitant]

REACTIONS (1)
  - Abdominal pain upper [None]
